FAERS Safety Report 7893622-7 (Version None)
Quarter: 2011Q4

REPORT INFORMATION
  Report Type: 
  Country: None (occurrence: None)
  Receive Date: 20111104
  Receipt Date: 20111021
  Transmission Date: 20120403
  Serious: Yes (Hospitalization)
  Sender: FDA-Public Use
  Company Number: US-GLAXOSMITHKLINE-B0727778A

PATIENT
  Sex: Male

DRUGS (1)
  1. ROSIGLITAZONE MALEATE [Suspect]
     Indication: DIABETES MELLITUS
     Route: 048

REACTIONS (9)
  - RENAL FAILURE [None]
  - CHEST PAIN [None]
  - MYOCARDIAL INFARCTION [None]
  - CARDIAC DISORDER [None]
  - HYPERTENSION [None]
  - FLUID RETENTION [None]
  - RENAL INJURY [None]
  - ARTERIOSCLEROSIS [None]
  - CORONARY ARTERY BYPASS [None]
